FAERS Safety Report 7601324-7 (Version None)
Quarter: 2011Q3

REPORT INFORMATION
  Report Type: 
  Country: None (occurrence: None)
  Receive Date: 20110711
  Receipt Date: 20110706
  Transmission Date: 20111222
  Serious: Yes (Life-Threatening)
  Sender: FDA-Public Use
  Company Number: RS-JNJFOC-20110702828

PATIENT
  Age: 42 Year
  Sex: Female

DRUGS (1)
  1. RISPERIDONE [Suspect]
     Indication: PSYCHOTIC DISORDER
     Dosage: 25 MG EVERY 2 WEEKS
     Route: 030
     Dates: start: 20110201, end: 20110601

REACTIONS (1)
  - PANCYTOPENIA [None]
